FAERS Safety Report 8612576-9 (Version None)
Quarter: 2012Q3

REPORT INFORMATION
  Report Type: 
  Country: None (occurrence: None)
  Receive Date: 20120822
  Receipt Date: 20111122
  Transmission Date: 20120928
  Serious: No
  Sender: FDA-Public Use
  Company Number: US-ASTRAZENECA-2011SE62142

PATIENT
  Age: 59 Year
  Sex: Male

DRUGS (1)
  1. SYMBICORT [Suspect]
     Dosage: 160/4.5 MCG, ONE PUFF TWICE DAILY
     Route: 055

REACTIONS (3)
  - WHEEZING [None]
  - INCORRECT DOSE ADMINISTERED BY DEVICE [None]
  - OFF LABEL USE [None]
